FAERS Safety Report 13686922 (Version 1)
Quarter: 2017Q2

REPORT INFORMATION
  Report Type: Spontaneous
  Country: FR (occurrence: FR)
  Receive Date: 20170623
  Receipt Date: 20170623
  Transmission Date: 20170830
  Serious: Yes (Other)
  Sender: FDA-Public Use
  Company Number: FR-PFIZER INC-2017271613

PATIENT
  Age: 59 Year
  Sex: Male

DRUGS (8)
  1. ZELITREX [Suspect]
     Active Substance: VALACYCLOVIR HYDROCHLORIDE
     Dosage: 1000 MG, QD
     Route: 048
     Dates: start: 20170217
  2. CHOLURSO [Suspect]
     Active Substance: URSODIOL
     Dosage: 500 MG, TID
     Route: 048
     Dates: start: 20170217
  3. NEORAL [Suspect]
     Active Substance: CYCLOSPORINE
     Dosage: 200 MG, QD
     Route: 048
     Dates: start: 20170217
  4. CELLCEPT [Suspect]
     Active Substance: MYCOPHENOLATE MOFETIL\MYCOPHENOLATE MOFETIL HYDROCHLORIDE
     Dosage: 3000 MG, QD
     Route: 065
     Dates: start: 20170217
  5. PANTOPRAZOLE [Suspect]
     Active Substance: PANTOPRAZOLE
     Dosage: 20 MG, QD
     Route: 048
     Dates: start: 20170217
  6. KALEORID [Suspect]
     Active Substance: POTASSIUM CHLORIDE
     Dosage: 3000 MG, QD
     Route: 048
     Dates: start: 20170217
  7. BACTRIM [Suspect]
     Active Substance: SULFAMETHOXAZOLE\TRIMETHOPRIM
     Dosage: 800 MG, 3/WEEK
     Route: 048
     Dates: start: 20170217
  8. CLAMOXYL /00249601/ [Suspect]
     Active Substance: AMOXICILLIN
     Dosage: 1.5 G, TID
     Route: 048
     Dates: start: 20170217

REACTIONS (1)
  - Renal failure [Unknown]

NARRATIVE: CASE EVENT DATE: 20170407
